FAERS Safety Report 4944023-2 (Version None)
Quarter: 2006Q1

REPORT INFORMATION
  Report Type: 
  Country: None (occurrence: None)
  Receive Date: 20060310
  Receipt Date: 20060223
  Transmission Date: 20060701
  Serious: Yes (Other)
  Sender: FDA-Public Use
  Company Number: PHBS2006US03295

PATIENT
  Age: 11 Year
  Sex: Male

DRUGS (1)
  1. VISUDYNE [Suspect]
     Indication: HAEMANGIOMA OF RETINA
     Dosage: 6 MG M^2 ONCE IV
     Route: 042

REACTIONS (5)
  - CAPILLARY DISORDER [None]
  - DRUG INEFFECTIVE [None]
  - RETINAL DETACHMENT [None]
  - RETINOPATHY PROLIFERATIVE [None]
  - VISUAL ACUITY REDUCED TRANSIENTLY [None]
